FAERS Safety Report 24117188 (Version 1)
Quarter: 2024Q3

REPORT INFORMATION
  Report Type: Spontaneous
  Country: GB (occurrence: GB)
  Receive Date: 20240722
  Receipt Date: 20240722
  Transmission Date: 20241016
  Serious: Yes (Other)
  Sender: ISTITUTO BICHIMICO ITALIANO GIOVANNI LORENZINI (IBIGEN)
  Company Number: GB-MHRA-TPP58375521C20988500YC1719398389246

PATIENT
  Age: 7 Year
  Sex: Male
  Weight: 24 kg

DRUGS (9)
  1. PIPERACILLIN SODIUM\TAZOBACTAM SODIUM [Suspect]
     Active Substance: PIPERACILLIN SODIUM\TAZOBACTAM SODIUM
     Indication: Ill-defined disorder
     Dosage: PIPERACILLIN 2G / TAZOBACTAM 250MG POWDER FOR SOLUTION FOR INFUSION VIALS ()
     Dates: start: 20240626
  2. SODIUM CHLORIDE [Concomitant]
     Active Substance: SODIUM CHLORIDE
     Indication: Ill-defined disorder
     Dosage: USE AS DIRECTED ()
     Dates: start: 20240403
  3. 2-HYDROXYETHYL METHACRYLATE\DEVICE [Concomitant]
     Active Substance: 2-HYDROXYETHYL METHACRYLATE\DEVICE
     Indication: Ill-defined disorder
     Dosage: USE AS DIRECTED ()
     Dates: start: 20240403, end: 20240501
  4. CHLORAPREP [Concomitant]
     Active Substance: CHLORHEXIDINE GLUCONATE\ISOPROPYL ALCOHOL
     Indication: Ill-defined disorder
     Dosage: USE AS DIRECTED ()
     Dates: start: 20240416
  5. FOLIC ACID [Concomitant]
     Active Substance: FOLIC ACID
     Indication: Ill-defined disorder
     Dosage: 2X5ML SPOON ONCE DAILY
     Dates: start: 20221024
  6. PENICILLIN V [Concomitant]
     Active Substance: PENICILLIN V
     Indication: Ill-defined disorder
     Dosage: 1X5ML SPOON TWICE DAILY (PROPHYLAXIS)
     Dates: start: 20221024
  7. LANSOPRAZOLE [Concomitant]
     Active Substance: LANSOPRAZOLE
     Indication: Ill-defined disorder
     Dosage: WHILST ON ASPIRIN
     Dates: start: 20230411
  8. ASPIRIN [Concomitant]
     Active Substance: ASPIRIN
     Indication: Ill-defined disorder
     Dosage: DISSOLVE ONE TABLET
     Dates: start: 20230412
  9. CLEARPORE [Concomitant]
     Indication: Ill-defined disorder
     Dosage: USE AS DIRECTED ()
     Dates: start: 20240416

REACTIONS (3)
  - Cough [Recovered/Resolved]
  - Chest discomfort [Unknown]
  - Wheezing [Recovered/Resolved]
